FAERS Safety Report 16165625 (Version 1)
Quarter: 2019Q2

REPORT INFORMATION
  Report Type: Spontaneous
  Country: CN (occurrence: CN)
  Receive Date: 20190405
  Receipt Date: 20190405
  Transmission Date: 20190711
  Serious: Yes (Other)
  Sender: FDA-Public Use
  Company Number: CN-BAXTER-2019BAX006592

PATIENT
  Age: 2 Year
  Sex: Male
  Weight: 11 kg

DRUGS (18)
  1. 5% GLUCOSE  INJECTION [Suspect]
     Active Substance: DEXTROSE
     Indication: MEDICATION DILUTION
     Dosage: CYTOSAR 0.024 G+ 5% GLUCOSE INJECTION 50 ML, Q12H IVGTT
     Route: 041
     Dates: start: 20181121, end: 20181128
  2. CYTOSAR [Suspect]
     Active Substance: CYTARABINE
     Dosage: CYTOSAR 0.024 G+ 5% GLUCOSE INJECTION 50 ML, Q12H IV GTT
     Route: 041
     Dates: start: 20181121, end: 20181128
  3. SODIUM CHLORIDE. [Suspect]
     Active Substance: SODIUM CHLORIDE
     Dosage: DOSE RE-INTRODUCED, DEXAMETHASONE SODIUM PHOSPHATE + 10% SODIUM CHLORIDE
     Route: 037
  4. 0.9% SODIUM CHLORIDE INJECTION [Suspect]
     Active Substance: SODIUM CHLORIDE
     Indication: MEDICATION DILUTION
     Dosage: CYCLOPHOSPHAMIDE FOR INJECTION 0.485G + 0.9% SODIUM CHLORIDE INJECTION 250 ML, IVGTT
     Route: 041
     Dates: start: 20181121, end: 20181121
  5. 0.9% SODIUM CHLORIDE INJECTION [Suspect]
     Active Substance: SODIUM CHLORIDE
     Dosage: DOSE RE-INTRODUCED, CYCLOPHOSPHAMIDE FOR INJECTION + 0.9% SODIUM CHLORIDE INJECTION, IVGTT
     Route: 041
  6. CYTOSAR [Suspect]
     Active Substance: CYTARABINE
     Dosage: DOSE RE-INTRODUCED, CYTOSAR + 10% SODIUM CHLORIDE
     Route: 037
  7. SODIUM CHLORIDE. [Suspect]
     Active Substance: SODIUM CHLORIDE
     Indication: MEDICATION DILUTION
     Dosage: IT METHOTREXATE FOR INJECTION 10 MG +DEXAMETHASONE SODIUM PHOSPHATE 2.5 MG + 10% SODIUM CHLORIDE INJ
     Route: 037
     Dates: start: 20181121, end: 20181121
  8. SODIUM CHLORIDE. [Suspect]
     Active Substance: SODIUM CHLORIDE
     Dosage: CYTOSAR 0.025 G + 10% SODIUM CHLORIDE INJECTION 3 ML
     Route: 037
     Dates: start: 20181121, end: 20181121
  9. METHOTREXATE. [Suspect]
     Active Substance: METHOTREXATE
     Indication: ACUTE LYMPHOCYTIC LEUKAEMIA
     Dosage: IT METHOTREXATE FOR INJECTION 10 MG +DEXAMETHASONE SODIUM PHOSPHATE 2.5 MG + 10% SODIUM CHLORIDE INJ
     Route: 037
     Dates: start: 20181121, end: 20181121
  10. SODIUM CHLORIDE. [Suspect]
     Active Substance: SODIUM CHLORIDE
     Dosage: DOSE RE-INTRODUCED, CYTOSAR + 10% SODIUM CHLORIDE
     Route: 037
  11. ENDOXAN [Suspect]
     Active Substance: CYCLOPHOSPHAMIDE
     Indication: ACUTE LYMPHOCYTIC LEUKAEMIA
     Dosage: CYCLOPHOSPHAMIDE FOR INJECTION 0.485G + 0.9% SODIUM CHLORIDE INJECTION 250 ML, IVGTT
     Route: 041
     Dates: start: 20181121, end: 20181121
  12. METHOTREXATE. [Suspect]
     Active Substance: METHOTREXATE
     Dosage: DOSE RE-INTRODUCED, IT METHOTREXATE FOR INJECTION +DEXAMETHASONE SODIUM PHOSPHATE + 10% SODIUM CHLOR
     Route: 037
  13. DEXAMETHASONE SODIUM PHOSPHATE. [Suspect]
     Active Substance: DEXAMETHASONE SODIUM PHOSPHATE
     Indication: ACUTE LYMPHOCYTIC LEUKAEMIA
     Dosage: IT METHOTREXATE FOR INJECTION 10 MG +DEXAMETHASONE SODIUM PHOSPHATE 2.5 MG + 10% SODIUM CHLORIDE INJ
     Route: 037
     Dates: start: 20181121, end: 20181121
  14. ENDOXAN [Suspect]
     Active Substance: CYCLOPHOSPHAMIDE
     Dosage: DOSE RE-INTRODUCED, IV GTT CYCLOPHOSPHAMIDE FOR INJECTION + 0.9% SODIUM CHLORIDE INJECTION, IVGTT
     Route: 041
  15. 5% GLUCOSE  INJECTION [Suspect]
     Active Substance: DEXTROSE
     Dosage: DOSE RE-INTRODUCED, CYTOSAR + 5% GLUCOSE INJECTION, Q12H IVGTT,
     Route: 041
  16. CYTOSAR [Suspect]
     Active Substance: CYTARABINE
     Indication: ACUTE LYMPHOCYTIC LEUKAEMIA
     Dosage: CYTOSAR 0.025 G + 10% SODIUM CHLORIDE 3 ML
     Route: 037
     Dates: start: 20181121, end: 20181121
  17. CYTOSAR [Suspect]
     Active Substance: CYTARABINE
     Dosage: DOSE RE-INTRODUCED, CYTOSAR + 5% GLUCOSE INJECTION, Q12H IVGTT,
     Route: 041
  18. DEXAMETHASONE SODIUM PHOSPHATE. [Suspect]
     Active Substance: DEXAMETHASONE SODIUM PHOSPHATE
     Dosage: DOSE RE-INTRODUCED, IT METHOTREXATE FOR INJECTION + DEXAMETHASONE SODIUM PHOSPHATE + 10% SODIUM CHLO
     Route: 037

REACTIONS (2)
  - Bone marrow failure [Recovering/Resolving]
  - Depression [Unknown]

NARRATIVE: CASE EVENT DATE: 20181205
